FAERS Safety Report 8888265 (Version 2)
Quarter: 2013Q1

REPORT INFORMATION
  Report Type: Spontaneous
  Country: US (occurrence: US)
  Receive Date: 20121106
  Receipt Date: 20130117
  Transmission Date: 20140127
  Serious: No
  Sender: FDA-Public Use
  Company Number: US-B.I. PHARMACEUTICALS,INC./RIDGEFIELD-2012-BP-27095BP

PATIENT
  Sex: Female
  Weight: 100 kg

DRUGS (21)
  1. PRADAXA [Suspect]
     Indication: ATRIAL FIBRILLATION
     Dosage: 150 MG
     Route: 048
     Dates: start: 2011
  2. PRADAXA [Suspect]
     Indication: ATRIAL FLUTTER
  3. CALCIUM-VITAMIN D [Concomitant]
     Indication: SUPPLEMENTATION THERAPY
     Route: 048
  4. VITAMIN C WITH ROSE HIPS [Concomitant]
     Indication: SUPPLEMENTATION THERAPY
     Dosage: 1000 MG
     Route: 048
  5. ALBUTEROL [Concomitant]
     Indication: WHEEZING
     Route: 055
  6. VENTOLIN HFA [Concomitant]
     Dosage: 8 PUF
     Route: 055
  7. MULTIVITAMIN [Concomitant]
     Route: 048
  8. VITAMIN B COMPLEX [Concomitant]
     Route: 048
  9. KLOR-CON 10 [Concomitant]
     Dosage: 10 MEQ
     Route: 048
  10. PREDNISONE [Concomitant]
     Indication: ASTHMA
     Dosage: 40 MG
     Route: 048
  11. VITAMIN E [Concomitant]
     Dosage: 400 U
     Route: 048
  12. LISINOPRIL [Concomitant]
     Dosage: 40 MG
     Route: 048
  13. FAMOTIDINE [Concomitant]
     Dosage: 20 MG
     Route: 048
  14. CARDIAC MEDICATION [Concomitant]
     Indication: CARDIAC FAILURE CONGESTIVE
  15. ACCOLATE [Concomitant]
     Dosage: 40 MG
     Route: 048
  16. ADVAIR DISKUS [Concomitant]
     Route: 055
  17. LASIX [Concomitant]
     Dosage: 20 MG
     Route: 048
  18. ALBUTEROL CFC FREE [Concomitant]
     Route: 055
  19. DIGOXIN [Concomitant]
     Dosage: 125 MCG
     Route: 048
  20. METOPROLOL SUCCINATE [Concomitant]
     Dosage: 150 MG
     Route: 048
  21. PRAVASTATIN [Concomitant]
     Dosage: 40 MG
     Route: 048

REACTIONS (6)
  - Tinnitus [Not Recovered/Not Resolved]
  - Foreign body [Not Recovered/Not Resolved]
  - Product quality issue [Unknown]
  - Bronchitis [Unknown]
  - Feeling abnormal [Unknown]
  - Joint swelling [Unknown]
